FAERS Safety Report 6784338-9 (Version None)
Quarter: 2010Q2

REPORT INFORMATION
  Report Type: 
  Country: None (occurrence: None)
  Receive Date: 20100622
  Receipt Date: 20100616
  Transmission Date: 20101027
  Serious: Yes (Hospitalization)
  Sender: FDA-Public Use
  Company Number: US-GILEAD-2010-0029670

PATIENT
  Sex: Female

DRUGS (21)
  1. LETAIRIS [Suspect]
     Indication: PULMONARY ARTERIAL HYPERTENSION
     Route: 048
     Dates: start: 20100201
  2. REVATIO [Concomitant]
     Indication: PULMONARY ARTERIAL HYPERTENSION
  3. ASPIRIN [Concomitant]
  4. ALDACTAZIDE [Concomitant]
  5. ALDACTONE [Concomitant]
  6. LASIX [Concomitant]
  7. AZOR [Concomitant]
  8. ACCUPRIL [Concomitant]
  9. BETAPACE [Concomitant]
  10. COREG [Concomitant]
  11. WELLBUTRIN XL [Concomitant]
  12. TRICOR [Concomitant]
  13. ZETIA [Concomitant]
  14. ZOCOR [Concomitant]
  15. CENTRUM [Concomitant]
  16. GLUCOSAMINE [Concomitant]
  17. ADVAIR DISKUS 100/50 [Concomitant]
  18. DUONEB [Concomitant]
  19. PROAIR HFA [Concomitant]
  20. CALCIUM MAGNESIUM ZINC [Concomitant]
  21. FISH OIL [Concomitant]

REACTIONS (1)
  - CHRONIC OBSTRUCTIVE PULMONARY DISEASE [None]
